FAERS Safety Report 16822843 (Version 1)
Quarter: 2019Q4

REPORT INFORMATION
  Report Type: Spontaneous
  Country: US (occurrence: US)
  Receive Date: 20190918
  Receipt Date: 20190918
  Transmission Date: 20200122
  Serious: Yes (Disabling, Other)
  Sender: FDA-Public Use
  Company Number: None

PATIENT
  Age: 57 Year
  Sex: Female
  Weight: 76.5 kg

DRUGS (8)
  1. ATENOLOL. [Concomitant]
     Active Substance: ATENOLOL
  2. TYLENOL [Concomitant]
     Active Substance: ACETAMINOPHEN
  3. ESTRADIOL VAGINAL CREAM, USP 0.01% PRODUCT OF GERMANY [Suspect]
     Active Substance: ESTRADIOL
     Indication: ATROPHIC VULVOVAGINITIS
     Dosage: ?          QUANTITY:2 GRAM;?
     Route: 067
     Dates: start: 20190819, end: 20190823
  4. HYDROXYCHLOROQUINE [Concomitant]
     Active Substance: HYDROXYCHLOROQUINE
  5. IBUPROFEN. [Concomitant]
     Active Substance: IBUPROFEN
  6. LEVOTHYROXINE. [Concomitant]
     Active Substance: LEVOTHYROXINE
  7. OCCASIONAL MULTIVITAMIN [Concomitant]
  8. ACTEMRA [Concomitant]
     Active Substance: TOCILIZUMAB

REACTIONS (9)
  - Hot flush [None]
  - Blood pressure increased [None]
  - Rhinorrhoea [None]
  - Abdominal distension [None]
  - Headache [None]
  - Aphasia [None]
  - Confusional state [None]
  - Unevaluable event [None]
  - Vertigo [None]

NARRATIVE: CASE EVENT DATE: 20190823
